FAERS Safety Report 6360858-6 (Version None)
Quarter: 2009Q3

REPORT INFORMATION
  Report Type: 
  Country: None (occurrence: None)
  Receive Date: 20090918
  Receipt Date: 20090908
  Transmission Date: 20100115
  Serious: Yes (Disabling)
  Sender: FDA-Public Use
  Company Number: US-CELGENEUS-163-21880-09090591

PATIENT
  Sex: Male
  Weight: 63.106 kg

DRUGS (10)
  1. REVLIMID [Suspect]
     Route: 048
     Dates: start: 20090528
  2. REVLIMID [Suspect]
     Indication: MYELOPROLIFERATIVE DISORDER
     Route: 048
     Dates: start: 20090603
  3. REVLIMID [Suspect]
     Route: 048
     Dates: start: 20090612
  4. PREVACID [Concomitant]
     Indication: DRUG USE FOR UNKNOWN INDICATION
     Route: 065
  5. CELEXA [Concomitant]
     Indication: DRUG USE FOR UNKNOWN INDICATION
     Route: 065
  6. VITAMIN D3 [Concomitant]
     Indication: DRUG USE FOR UNKNOWN INDICATION
     Route: 065
  7. VITAMIN D [Concomitant]
     Indication: DRUG USE FOR UNKNOWN INDICATION
     Route: 065
  8. LIPITOR [Concomitant]
     Indication: DRUG USE FOR UNKNOWN INDICATION
     Route: 065
  9. LOPRESSOR [Concomitant]
     Indication: DRUG USE FOR UNKNOWN INDICATION
     Route: 065
  10. ASPIRIN [Concomitant]
     Indication: DRUG USE FOR UNKNOWN INDICATION
     Route: 065

REACTIONS (5)
  - ABASIA [None]
  - DECREASED APPETITE [None]
  - ERYTHEMA [None]
  - RASH MACULO-PAPULAR [None]
  - WEIGHT DECREASED [None]
